FAERS Safety Report 6793856 (Version 12)
Quarter: 2014Q3

REPORT INFORMATION
  Report Type: Spontaneous
  Country: JP (occurrence: JP)
  Receive Date: 20081022
  Receipt Date: 20140926
  Transmission Date: 20150326
  Serious: Yes (Death, Other)
  Sender: FDA-Public Use
  Company Number: PHHY2008JP24956

PATIENT
  Sex: Female
  Weight: 53 kg

DRUGS (10)
  1. ZOMETA [Suspect]
     Active Substance: ZOLEDRONIC ACID
     Indication: BREAST CANCER
     Dosage: 4 MG, DAILY
     Route: 042
     Dates: start: 200608, end: 200610
  2. SELBEX [Concomitant]
     Active Substance: TEPRENONE
     Dosage: 150 MG
     Route: 048
  3. FURTULON [Suspect]
     Active Substance: DOXIFLURIDINE
     Indication: BREAST CANCER
     Dosage: 1200 MG, DAILY
     Route: 048
     Dates: start: 20050613, end: 20070911
  4. ENDOXAN [Suspect]
     Active Substance: CYCLOPHOSPHAMIDE
     Indication: BREAST CANCER
     Dosage: 100 MG, DAILY
     Route: 048
     Dates: start: 20050613, end: 20070821
  5. HYSRON [Suspect]
     Active Substance: MEDROXYPROGESTERONE
     Indication: BREAST CANCER
     Dosage: 600 MG, DAILY
     Route: 048
     Dates: start: 20070619, end: 20070821
  6. CEPHARANTHIN [Concomitant]
     Dosage: 6 MG
     Route: 048
  7. OXYCONTIN [Concomitant]
     Active Substance: OXYCODONE HYDROCHLORIDE
     Dosage: 450 MG
     Route: 048
  8. ZOMETA [Suspect]
     Active Substance: ZOLEDRONIC ACID
     Dosage: UNK
     Route: 042
     Dates: start: 200709
  9. GRAN [Concomitant]
     Active Substance: FILGRASTIM
     Dosage: 75 UG
     Route: 042
  10. ZOMETA [Suspect]
     Active Substance: ZOLEDRONIC ACID
     Indication: METASTASES TO BONE
     Dosage: UNK
     Route: 042
     Dates: start: 200607

REACTIONS (23)
  - Pleural effusion [Fatal]
  - Osteonecrosis of jaw [Recovered/Resolved]
  - Swelling [Unknown]
  - Abscess [Unknown]
  - Exposed bone in jaw [Unknown]
  - Primary sequestrum [Unknown]
  - Soft tissue inflammation [Unknown]
  - Device failure [Unknown]
  - Metastases to chest wall [Fatal]
  - Hypoaesthesia oral [Unknown]
  - Facial pain [Unknown]
  - Gingival swelling [Unknown]
  - Cardiac failure [Fatal]
  - Breast cancer recurrent [Fatal]
  - Pain in jaw [Unknown]
  - Oral cavity fistula [Unknown]
  - Face oedema [Unknown]
  - Osteomyelitis [Recovered/Resolved]
  - Metastases to the mediastinum [Fatal]
  - Metastases to lymph nodes [Fatal]
  - Resorption bone increased [Unknown]
  - Implant site oedema [Unknown]
  - Metastases to pleura [Fatal]
